FAERS Safety Report 10212393 (Version 3)
Quarter: 2014Q4

REPORT INFORMATION
  Report Type: Spontaneous
  Country: US (occurrence: US)
  Receive Date: 20140602
  Receipt Date: 20141008
  Transmission Date: 20150528
  Serious: Yes (Other)
  Sender: FDA-Public Use
  Company Number: US-AMGEN-USASP2014038222

PATIENT
  Age: 53 Year
  Sex: Male
  Weight: 107.48 kg

DRUGS (15)
  1. CITALOPRAM HYDROBROMIDE. [Concomitant]
     Active Substance: CITALOPRAM HYDROBROMIDE
     Dosage: 20 MG, QD
     Route: 048
  2. OMEPRAZOLE. [Concomitant]
     Active Substance: OMEPRAZOLE
     Dosage: 40 MG, ONE ONCE DAILY
  3. METHOTREXATE [Concomitant]
     Active Substance: METHOTREXATE
     Indication: ARTHROPATHY
     Dosage: 20 MG, QWK (2.5 8 TABLET ONCE WEEKLY)
     Route: 048
  4. FOLIC ACID. [Concomitant]
     Active Substance: FOLIC ACID
     Dosage: 1 MG, QD
     Route: 048
  5. ENBREL [Suspect]
     Active Substance: ETANERCEPT
     Indication: RHEUMATOID ARTHRITIS
     Dosage: 50 MG, QWK
     Route: 065
     Dates: start: 20140326, end: 201408
  6. VENTOLIN HFA [Concomitant]
     Active Substance: ALBUTEROL SULFATE
     Dosage: 108 MUG, 1-2 INHALATION PRIOR TO EXERTION
  7. CHLORTHALIDONE. [Concomitant]
     Active Substance: CHLORTHALIDONE
     Dosage: 25 MG, ONCE DAILY IN AM
  8. ENBREL [Suspect]
     Active Substance: ETANERCEPT
     Indication: SERONEGATIVE ARTHRITIS
  9. SYMBICORT [Concomitant]
     Active Substance: BUDESONIDE\FORMOTEROL FUMARATE DIHYDRATE
     Dosage: 1 INHALATION, BID
  10. AMLODIPINE BESYLATE. [Concomitant]
     Active Substance: AMLODIPINE BESYLATE
     Dosage: 5 MG, QD
     Route: 048
  11. MELATONIN [Concomitant]
     Active Substance: MELATONIN
     Dosage: 6 MG, QHS (3 MG, 2 TABLETS AT BEDTIME)
  12. ENBREL [Suspect]
     Active Substance: ETANERCEPT
     Indication: ARTHROPATHY
  13. NIASPAN [Concomitant]
     Active Substance: NIACIN
     Dosage: 500 MG, QHS
     Route: 048
  14. AMOXICILLIN. [Concomitant]
     Active Substance: AMOXICILLIN
     Dosage: 500 MG, TID
  15. LOSARTAN POTASSIUM. [Concomitant]
     Active Substance: LOSARTAN POTASSIUM
     Dosage: 25 MG, QD

REACTIONS (21)
  - Joint stiffness [Unknown]
  - Soft tissue disorder [Unknown]
  - Arthropathy [Unknown]
  - Sleep apnoea syndrome [Unknown]
  - Pain [Unknown]
  - Dyspnoea [Unknown]
  - Joint effusion [Unknown]
  - Injection site bruising [Not Recovered/Not Resolved]
  - Wheezing [Unknown]
  - Myalgia [Unknown]
  - Pain in extremity [Unknown]
  - Arthralgia [Unknown]
  - Joint range of motion decreased [Unknown]
  - Joint swelling [Unknown]
  - Grip strength decreased [Unknown]
  - Bone disorder [Unknown]
  - Gastrointestinal infection [Recovering/Resolving]
  - Snoring [Unknown]
  - Pneumonia [Recovered/Resolved]
  - Peripheral swelling [Unknown]
  - Joint crepitation [Unknown]

NARRATIVE: CASE EVENT DATE: 201408
